FAERS Safety Report 6215704-8 (Version None)
Quarter: 2009Q2

REPORT INFORMATION
  Report Type: 
  Country: None (occurrence: None)
  Receive Date: 20090603
  Receipt Date: 20090603
  Transmission Date: 20091009
  Serious: Yes (Other)
  Sender: FDA-Public Use
  Company Number: None

PATIENT
  Sex: Female
  Weight: 72.5755 kg

DRUGS (7)
  1. PROVIGIL [Suspect]
     Indication: SOMNAMBULISM
     Dosage: 200 MG 1 X DAILY ORAL 100 MG 1 X DAILY ORAL
     Route: 048
     Dates: start: 20090401, end: 20090512
  2. PROVIGIL [Suspect]
     Indication: SOMNAMBULISM
     Dosage: 200 MG 1 X DAILY ORAL 100 MG 1 X DAILY ORAL
     Route: 048
     Dates: start: 20090517, end: 20090522
  3. LOTENSIN [Concomitant]
  4. NAPROXEN [Concomitant]
  5. ZONASIMIDE [Concomitant]
  6. MIRAPEX [Concomitant]
  7. TRAMADOL HCL [Concomitant]

REACTIONS (4)
  - CHROMATURIA [None]
  - DYSPNOEA [None]
  - FATIGUE [None]
  - STOMATITIS [None]
